FAERS Safety Report 7736086-6 (Version None)
Quarter: 2011Q3

REPORT INFORMATION
  Report Type: 
  Country: None (occurrence: None)
  Receive Date: 20110902
  Receipt Date: 20110822
  Transmission Date: 20111222
  Serious: Yes (Hospitalization)
  Sender: FDA-Public Use
  Company Number: 1019737

PATIENT
  Age: 84 Year
  Sex: Male

DRUGS (11)
  1. DIMENHYDRINATE [Concomitant]
  2. HEPARIN SODIUM INJECTION [Concomitant]
  3. (LANSOPRZOLE) [Concomitant]
  4. MORPHINE SULFATE [Suspect]
     Indication: PRODUCT USED FOR UNKNOWN INDICATION
     Dosage: 7.5MG, AS REQUIRED , INTRAMUSCULAR; SUBCUTANEOUS
     Route: 030
  5. ACETAMINOPHEN [Concomitant]
  6. FUROSEMIDE INJ, USP (FUROSEMIDE) [Concomitant]
  7. INSULIN [Concomitant]
  8. (METOPROLOL) [Concomitant]
  9. (TPN /00897001) [Concomitant]
  10. PANTOPRAZOLE [Concomitant]
  11. (ZOPICLONE) [Suspect]
     Dosage: 3.75MG, AS REQUIRED, ORAL
     Route: 048

REACTIONS (3)
  - LOSS OF CONSCIOUSNESS [None]
  - OXYGEN SATURATION ABNORMAL [None]
  - DELIRIUM [None]
